FAERS Safety Report 8583883-3 (Version None)
Quarter: 2012Q3

REPORT INFORMATION
  Report Type: 
  Country: None (occurrence: None)
  Receive Date: 20120810
  Receipt Date: 20120802
  Transmission Date: 20120928
  Serious: Yes (Other)
  Sender: FDA-Public Use
  Company Number: GB-009507513-1208GBR002097

PATIENT

DRUGS (11)
  1. JANUVIA [Suspect]
     Dosage: UNK
     Route: 048
     Dates: start: 20120726
  2. PERINDOPRIL ERBUMINE [Concomitant]
     Dosage: UNK
     Dates: start: 20120404
  3. DIPYRIDAMOLE [Concomitant]
     Dosage: UNK
     Dates: start: 20120404, end: 20120504
  4. AMITRIPTYLINE HCL [Concomitant]
     Dosage: UNK
     Dates: start: 20120404
  5. GLICLAZIDE [Concomitant]
     Dosage: UNK
     Dates: start: 20120404
  6. JANUVIA [Suspect]
     Dosage: UNK
     Dates: start: 20120628
  7. ASPIRIN [Concomitant]
     Dosage: UNK
     Dates: start: 20120404
  8. ATORVASTATIN [Concomitant]
     Dosage: UNK
     Dates: start: 20120404
  9. AMOXICILLIN [Concomitant]
     Dosage: UNK
     Dates: start: 20120726
  10. DIPYRIDAMOLE [Concomitant]
     Dosage: UNK
     Dates: start: 20120531
  11. METFORMIN HYDROCHLORIDE [Concomitant]
     Dosage: UNK
     Dates: start: 20120404, end: 20120726

REACTIONS (5)
  - DECREASED APPETITE [None]
  - RHINORRHOEA [None]
  - CONSTIPATION [None]
  - PAIN [None]
  - DIZZINESS [None]
